FAERS Safety Report 8924627 (Version 1)
Quarter: 2012Q4

REPORT INFORMATION
  Report Type: 
  Country: US (occurrence: US)
  Receive Date: 20121126
  Receipt Date: 20121126
  Transmission Date: 20130627
  Serious: No
  Sender: FDA-Public Use
  Company Number: US-BRISTOL-MYERS SQUIBB COMPANY-16946170

PATIENT

DRUGS (1)
  1. KOMBIGLYZE XR [Suspect]
     Dosage: 1DF:5 mg/1000mg

REACTIONS (2)
  - Incorrect dose administered [Unknown]
  - Dysphagia [Unknown]
